FAERS Safety Report 9845072 (Version 1)
Quarter: 2014Q1

REPORT INFORMATION
  Report Type: Spontaneous
  Country: US (occurrence: None)
  Receive Date: 20140122
  Receipt Date: 20140122
  Transmission Date: 20141002
  Serious: Yes (Hospitalization)
  Sender: FDA-Public Use
  Company Number: 20140003

PATIENT
  Age: 40 Year
  Sex: Male

DRUGS (1)
  1. SUBSYS [Suspect]
     Indication: CROHN^S DISEASE
     Route: 060

REACTIONS (3)
  - Dysarthria [None]
  - Confusional state [None]
  - Overdose [None]
